FAERS Safety Report 7743703-3 (Version None)
Quarter: 2011Q3

REPORT INFORMATION
  Report Type: 
  Country: None (occurrence: None)
  Receive Date: 20110912
  Receipt Date: 20110901
  Transmission Date: 20111222
  Serious: Yes (Disabling)
  Sender: FDA-Public Use
  Company Number: JP-MERCK-1109USA00413

PATIENT
  Sex: Female

DRUGS (2)
  1. ZETIA [Suspect]
     Route: 048
     Dates: start: 20080101
  2. ZETIA [Suspect]
     Dosage: HALVED THE DOSE
     Route: 048

REACTIONS (6)
  - MUSCULAR WEAKNESS [None]
  - ANKLE FRACTURE [None]
  - HAEMATOCHEZIA [None]
  - CONSTIPATION [None]
  - ABDOMINAL ADHESIONS [None]
  - WRONG TECHNIQUE IN DRUG USAGE PROCESS [None]
